FAERS Safety Report 5060422-5 (Version None)
Quarter: 2006Q3

REPORT INFORMATION
  Report Type: 
  Country: None (occurrence: None)
  Receive Date: 20060720
  Receipt Date: 20060711
  Transmission Date: 20061208
  Serious: Yes (Hospitalization)
  Sender: FDA-Public Use
  Company Number: HQWYE044720MAY04

PATIENT
  Age: 54 Year
  Sex: Female
  Weight: 90.8 kg

DRUGS (9)
  1. PREMPRO [Suspect]
     Indication: MENOPAUSE
     Dosage: ORAL
     Route: 048
     Dates: start: 19960801, end: 20020401
  2. PREMARIN [Suspect]
     Indication: MENOPAUSE
     Dosage: ORAL
     Route: 048
     Dates: start: 19950201, end: 19960701
  3. PROVERA [Suspect]
     Indication: MENOPAUSE
     Dosage: ORAL
     Route: 048
     Dates: start: 19950201, end: 19960701
  4. ACTOS [Concomitant]
  5. GLUCOPHAGE [Concomitant]
  6. VIOXX [Concomitant]
  7. NEXIUM [Concomitant]
  8. SYNTHROID [Concomitant]
  9. LIPITOR [Concomitant]

REACTIONS (9)
  - BREAST CANCER METASTATIC [None]
  - CHORDOMA [None]
  - LYMPHOMA [None]
  - METASTASES TO BONE [None]
  - METASTASES TO BONE MARROW [None]
  - METASTASES TO SPINE [None]
  - MULTIPLE MYELOMA [None]
  - OESTROGEN RECEPTOR ASSAY POSITIVE [None]
  - PROGESTERONE RECEPTOR ASSAY POSITIVE [None]
